FAERS Safety Report 14251389 (Version 1)
Quarter: 2017Q4

REPORT INFORMATION
  Report Type: Spontaneous
  Country: GB (occurrence: GB)
  Receive Date: 20171205
  Receipt Date: 20171205
  Transmission Date: 20180321
  Serious: Yes (Other)
  Sender: FDA-Public Use
  Company Number: PHHY2017GB175674

PATIENT
  Sex: Female

DRUGS (4)
  1. XALKORI [Suspect]
     Active Substance: CRIZOTINIB
     Indication: ANAPLASTIC LYMPHOMA KINASE GENE MUTATION
     Dosage: 250 MG, BID
     Route: 065
  2. XALKORI [Suspect]
     Active Substance: CRIZOTINIB
     Dosage: 250 MG, QD
     Route: 065
  3. ZYKADIA [Suspect]
     Active Substance: CERITINIB
     Indication: ANAPLASTIC LYMPHOMA KINASE GENE MUTATION
     Dosage: 250 MG, BID
     Route: 065
  4. ZYKADIA [Suspect]
     Active Substance: CERITINIB
     Dosage: 250 MG, QD
     Route: 065

REACTIONS (3)
  - Electrocardiogram QT prolonged [Unknown]
  - Heart rate decreased [Not Recovered/Not Resolved]
  - Transaminases increased [Unknown]
